FAERS Safety Report 4804183-0 (Version None)
Quarter: 2005Q4

REPORT INFORMATION
  Report Type: 
  Country: None (occurrence: None)
  Receive Date: 20051020
  Receipt Date: 20051006
  Transmission Date: 20060501
  Serious: Yes (Life-Threatening)
  Sender: FDA-Public Use
  Company Number: US-KINGPHARMUSA00001-K200501323

PATIENT
  Age: 75 Year
  Sex: Male

DRUGS (4)
  1. ALTACE [Suspect]
     Dosage: 2.5 MG, QD
     Route: 048
     Dates: start: 20040401
  2. CLOPIDOGREL BISULFATE [Suspect]
     Dosage: 75 MG, QD
     Route: 048
     Dates: start: 20040401
  3. EMCONCOR   /BEL/ [Suspect]
     Dosage: 10 MG, QD
     Route: 048
     Dates: start: 20040401
  4. ZOCOR [Suspect]
     Dosage: 20 MG, QD
     Route: 048
     Dates: start: 20040401

REACTIONS (1)
  - GASTROINTESTINAL HAEMORRHAGE [None]
